FAERS Safety Report 9772740 (Version 4)
Quarter: 2016Q1

REPORT INFORMATION
  Report Type: Report from Study
  Country: FR (occurrence: FR)
  Receive Date: 20131219
  Receipt Date: 20160328
  Transmission Date: 20160526
  Serious: Yes (Other)
  Sender: FDA-Public Use
  Company Number: FR-TEVA-451701USA

PATIENT
  Age: 74 Year
  Sex: Male
  Weight: 78 kg

DRUGS (26)
  1. ANTIHISTAMINES [Concomitant]
     Active Substance: ANTIHISTAMINES NOS
     Indication: ECZEMA
  2. DEXAMETHASONE. [Suspect]
     Active Substance: DEXAMETHASONE
     Indication: MANTLE CELL LYMPHOMA
     Dosage: FREQUENCY: ON D2 / CYCLE
     Route: 042
     Dates: start: 20121220, end: 20130522
  3. RITUXIMAB [Suspect]
     Active Substance: RITUXIMAB
     Indication: MANTLE CELL LYMPHOMA
     Dosage: D1 PER CYCLE
     Route: 041
     Dates: start: 20121219
  4. RITUXIMAB [Suspect]
     Active Substance: RITUXIMAB
     Dosage: 770 MG, ON DAY 1 OF EACH COURSE
     Route: 041
     Dates: start: 201304
  5. BORTEZOMIB [Suspect]
     Active Substance: BORTEZOMIB
     Indication: MANTLE CELL LYMPHOMA
     Dosage: D1, D4, D8 AND D11 PER CYCLE (4 TIMES PER 1 CYCLE)
     Route: 058
     Dates: start: 20121219, end: 20130531
  6. BORTEZOMIB [Suspect]
     Active Substance: BORTEZOMIB
     Dosage: D1, D4, D8 AND D11 PER CYCLE (4 TIMES PER 1 CYCLE)
     Route: 058
     Dates: start: 20130312
  7. BORTEZOMIB [Suspect]
     Active Substance: BORTEZOMIB
     Dosage: DAY 1, DAY, 4, DAY 8 AND DAY 11 OF EACH COURSE, CYCLIC
     Route: 058
  8. RITUXIMAB [Suspect]
     Active Substance: RITUXIMAB
     Dosage: D1 PER CYCLE
     Route: 041
     Dates: start: 201302
  9. RITUXIMAB [Suspect]
     Active Substance: RITUXIMAB
     Dosage: DAY 1 OF EACH COURSE
     Route: 041
     Dates: start: 201304
  10. BENDAMUSTINE [Suspect]
     Active Substance: BENDAMUSTINE
     Dosage: FREQUENCY: DAY 1 AND DAY 2 PER CYCLE (2 TIMES PER 1 CYCLE)
     Route: 042
     Dates: start: 201302
  11. DEXAMETHASONE. [Suspect]
     Active Substance: DEXAMETHASONE
     Dosage: FREQUENCY: ON D2 / CYCLE
     Route: 042
     Dates: start: 201302
  12. DEXAMETHASONE. [Suspect]
     Active Substance: DEXAMETHASONE
     Dosage: FREQUENCY: ON D2 / CYCLE
     Route: 042
     Dates: start: 20130312
  13. BENDAMUSTINE [Suspect]
     Active Substance: BENDAMUSTINE
     Dosage: FREQUENCY: DAY 1 AND DAY 2 PER CYCLE (2 TIMES PER 1 CYCLE)
     Route: 042
     Dates: start: 201301
  14. BENDAMUSTINE [Suspect]
     Active Substance: BENDAMUSTINE
     Dosage: FREQUENCY: DAY 1 AND DAY 2 PER CYCLE (2 TIMES PER 1 CYCLE)
     Route: 042
     Dates: start: 201304
  15. RITUXIMAB [Suspect]
     Active Substance: RITUXIMAB
     Dosage: D1 PER CYCLE
     Route: 041
     Dates: start: 20130312
  16. BORTEZOMIB [Suspect]
     Active Substance: BORTEZOMIB
     Dosage: 2.65 MG ON DAY 1, DAY, 4, DAY 8 AND DAY 11 OF EACH COURSE, CYCLIC
     Route: 058
     Dates: start: 201304
  17. DEXAMETHASONE. [Suspect]
     Active Substance: DEXAMETHASONE
     Dosage: FREQUENCY: ON D2 / CYCLE
     Route: 042
     Dates: start: 201304
  18. RITUXIMAB [Suspect]
     Active Substance: RITUXIMAB
     Dosage: D1 PER CYCLE
     Route: 041
     Dates: start: 201301
  19. BORTEZOMIB [Suspect]
     Active Substance: BORTEZOMIB
     Dosage: D1, D4, D8 AND D11 PER CYCLE (4 TIMES PER 1 CYCLE)
     Route: 058
     Dates: start: 201302
  20. VALSARTAN. [Concomitant]
     Active Substance: VALSARTAN
     Indication: ESSENTIAL HYPERTENSION
  21. BENDAMUSTINE [Suspect]
     Active Substance: BENDAMUSTINE
     Indication: MANTLE CELL LYMPHOMA
     Dosage: 90 MG/M2 (190 MG) ON DAY 1  AND 2 CYCLE 1
     Route: 042
     Dates: start: 20121219
  22. BENDAMUSTINE [Suspect]
     Active Substance: BENDAMUSTINE
     Dosage: FREQUENCY: DAY 1 AND DAY 2 PER CYCLE (2 TIMES PER 1 CYCLE)
     Route: 042
     Dates: start: 20130312
  23. BENDAMUSTINE [Suspect]
     Active Substance: BENDAMUSTINE
     Dosage: FREQUENCY: DAY 1 AND DAY 2 PER CYCLE (2 TIMES PER 1 CYCLE)
     Route: 042
  24. DEXAMETHASONE. [Suspect]
     Active Substance: DEXAMETHASONE
     Dosage: FREQUENCY: ON D2 / CYCLE
     Route: 042
     Dates: start: 201301
  25. BORTEZOMIB [Suspect]
     Active Substance: BORTEZOMIB
     Route: 058
     Dates: start: 201301
  26. DEXAMETHASONE. [Suspect]
     Active Substance: DEXAMETHASONE
     Dosage: FREQUENCY: ON D2 / CYCLE
     Route: 042

REACTIONS (1)
  - Polyneuropathy [Recovering/Resolving]

NARRATIVE: CASE EVENT DATE: 20130403
